FAERS Safety Report 12082583 (Version 1)
Quarter: 2016Q1

REPORT INFORMATION
  Report Type: Spontaneous
  Country: US (occurrence: US)
  Receive Date: 20160217
  Receipt Date: 20160217
  Transmission Date: 20160526
  Serious: No
  Sender: FDA-Public Use
  Company Number: US-009507513-1602USA007803

PATIENT
  Age: 24 Year
  Sex: Female

DRUGS (1)
  1. NEXPLANON [Suspect]
     Active Substance: ETONOGESTREL
     Indication: CONTRACEPTION
     Dosage: EVERY 3 YEARS, LEFT ARM IMPLANT
     Route: 059
     Dates: start: 20121211

REACTIONS (12)
  - Breast pain [Unknown]
  - Nausea [Unknown]
  - Pain [Unknown]
  - Weight increased [Unknown]
  - Libido decreased [Unknown]
  - Facial pain [Unknown]
  - Back pain [Unknown]
  - Photophobia [Unknown]
  - Menorrhagia [Unknown]
  - Migraine [Unknown]
  - Incorrect drug administration duration [Unknown]
  - Menstruation irregular [Unknown]

NARRATIVE: CASE EVENT DATE: 201512
